FAERS Safety Report 25549078 (Version 1)
Quarter: 2025Q3

REPORT INFORMATION
  Report Type: Spontaneous
  Country: EU (occurrence: EU)
  Receive Date: 20250714
  Receipt Date: 20250714
  Transmission Date: 20251020
  Serious: Yes (Hospitalization, Other)
  Sender: ASTELLAS
  Company Number: EU-ASTELLAS-2025-AER-037513

PATIENT
  Age: 69 Year
  Sex: Male

DRUGS (2)
  1. ENFORTUMAB VEDOTIN [Suspect]
     Active Substance: ENFORTUMAB VEDOTIN
     Indication: Bladder transitional cell carcinoma
     Route: 065
     Dates: start: 202405
  2. PEMBROLIZUMAB [Concomitant]
     Active Substance: PEMBROLIZUMAB
     Indication: Bladder transitional cell carcinoma
     Route: 065
     Dates: start: 202405

REACTIONS (12)
  - Aspergillus infection [Unknown]
  - Staphylococcal infection [Unknown]
  - Interstitial lung abnormality [Unknown]
  - Lung infiltration [Unknown]
  - Unresponsive to stimuli [Unknown]
  - Oxygen saturation decreased [Unknown]
  - Hypercapnia [Unknown]
  - Respiratory acidosis [Unknown]
  - Delirium [Unknown]
  - Pneumonitis [Unknown]
  - Obstructive sleep apnoea syndrome [Unknown]
  - Dyspnoea exertional [Unknown]

NARRATIVE: CASE EVENT DATE: 20250101
